FAERS Safety Report 25499654 (Version 1)
Quarter: 2025Q2

REPORT INFORMATION
  Report Type: Spontaneous
  Country: US (occurrence: None)
  Receive Date: 20250629
  Receipt Date: 20250629
  Transmission Date: 20250716
  Serious: Yes (unspecified)
  Sender: FDA-CTU
  Company Number: None

PATIENT
  Age: 28 Year
  Sex: Female
  Weight: 46.6 kg

DRUGS (3)
  1. BEPOTASTINE BESILATE [Suspect]
     Active Substance: BEPOTASTINE BESILATE
     Indication: Eye irritation
     Dosage: 1 DROP (S)  TWICE A DAY OPHTHALMIC
     Route: 047
  2. BEPOTASTINE BESILATE [Suspect]
     Active Substance: BEPOTASTINE BESILATE
     Indication: Multiple allergies
  3. Polypharm [Concomitant]

REACTIONS (3)
  - Visual impairment [None]
  - Migraine [None]
  - Ocular discomfort [None]

NARRATIVE: CASE EVENT DATE: 20250620
